FAERS Safety Report 4628248-1 (Version None)
Quarter: 2005Q2

REPORT INFORMATION
  Report Type: 
  Country: None (occurrence: None)
  Receive Date: 20050404
  Receipt Date: 20050322
  Transmission Date: 20051028
  Serious: Yes (Other)
  Sender: FDA-Public Use
  Company Number: 2005038564

PATIENT
  Age: 82 Year
  Sex: Female
  Weight: 41.8 kg

DRUGS (8)
  1. FRAGMIN [Suspect]
     Indication: DIALYSIS
     Dosage: 2000 I.U. (3 IN 1 WK), INTRAVENOUS
     Route: 042
     Dates: start: 20050112, end: 20050204
  2. NIFEDIPINE [Concomitant]
  3. CLOTIAZEPAM (CLOTIAZEPAM) [Concomitant]
  4. TEPRENONE (TEPRENONE) [Concomitant]
  5. DIGOXIN [Concomitant]
  6. ALFACALCIDOL (ALFACALCIDOL) [Concomitant]
  7. EPOETIN BETA (EPOETIN BETA) [Concomitant]
  8. NAFAMOSTAT MESILATE (NAFAMOSTAT MESILATE) [Concomitant]

REACTIONS (1)
  - ANAPHYLACTIC SHOCK [None]
